FAERS Safety Report 4840506-4 (Version None)
Quarter: 2005Q4

REPORT INFORMATION
  Report Type: 
  Country: None (occurrence: None)
  Receive Date: 20051130
  Receipt Date: 20050830
  Transmission Date: 20060501
  Serious: Yes (Disabling)
  Sender: FDA-Public Use
  Company Number: US-BRISTOL-MYERS SQUIBB COMPANY-13094602

PATIENT
  Age: 58 Year
  Sex: Male
  Weight: 70 kg

DRUGS (6)
  1. ERBITUX [Suspect]
     Indication: NEOPLASM MALIGNANT
     Dosage: REPORTED AS SECOND DOSE.
     Route: 042
     Dates: start: 20050826, end: 20050826
  2. RADIATION THERAPY [Concomitant]
  3. ETHYOL [Concomitant]
  4. BENADRYL [Concomitant]
  5. DECADRON [Concomitant]
  6. TYLENOL [Concomitant]

REACTIONS (1)
  - RASH [None]
